FAERS Safety Report 21727700 (Version 1)
Quarter: 2022Q4

REPORT INFORMATION
  Report Type: Spontaneous
  Country: US (occurrence: None)
  Receive Date: 20221213
  Receipt Date: 20221213
  Transmission Date: 20230113
  Serious: No
  Sender: FDA-Public Use
  Company Number: None

PATIENT
  Age: 8 Year
  Sex: Male
  Weight: 27 kg

DRUGS (2)
  1. MIRALAX [Suspect]
     Active Substance: POLYETHYLENE GLYCOL 3350
     Indication: Constipation
     Dates: start: 20220709, end: 20220826
  2. Flintstone vitamin [Concomitant]

REACTIONS (3)
  - Anxiety [None]
  - Paranoia [None]
  - Anger [None]

NARRATIVE: CASE EVENT DATE: 20220722
